FAERS Safety Report 15820931 (Version 4)
Quarter: 2019Q2

REPORT INFORMATION
  Report Type: Spontaneous
  Country: US (occurrence: US)
  Receive Date: 20190114
  Receipt Date: 20190524
  Transmission Date: 20190711
  Serious: No
  Sender: FDA-Public Use
  Company Number: US-BIOGEN-2019BI00679923

PATIENT
  Sex: Female

DRUGS (1)
  1. TYSABRI [Suspect]
     Active Substance: NATALIZUMAB
     Indication: MULTIPLE SCLEROSIS
     Dosage: INFUSED OVER 1 HOUR
     Route: 050
     Dates: start: 20150728

REACTIONS (6)
  - Multiple sclerosis [Recovered/Resolved]
  - Contusion [Recovered/Resolved]
  - Infusion site bruising [Not Recovered/Not Resolved]
  - Bone contusion [Recovered/Resolved]
  - Hyperkeratosis [Recovered/Resolved]
  - Device dislocation [Recovered/Resolved]
